FAERS Safety Report 20569921 (Version 1)
Quarter: 2022Q1

REPORT INFORMATION
  Report Type: Spontaneous
  Country: GB (occurrence: GB)
  Receive Date: 20220309
  Receipt Date: 20220309
  Transmission Date: 20220424
  Serious: Yes (Other)
  Sender: FDA-Public Use
  Company Number: None

PATIENT
  Age: 13 Year
  Sex: Male
  Weight: 28 kg

DRUGS (1)
  1. SUMATRIPTAN SUCCINATE [Suspect]
     Active Substance: SUMATRIPTAN SUCCINATE
     Indication: Product used for unknown indication
     Dosage: 1 DF (10MG/0.1ML AS DIRECTED)
     Route: 045
     Dates: start: 20220224

REACTIONS (4)
  - Periorbital oedema [Unknown]
  - Dyspnoea [Unknown]
  - Swelling face [Unknown]
  - Respiratory symptom [Unknown]

NARRATIVE: CASE EVENT DATE: 20220228
